FAERS Safety Report 11776579 (Version 2)
Quarter: 2016Q3

REPORT INFORMATION
  Report Type: Report from Study
  Country: CA (occurrence: CA)
  Receive Date: 20151125
  Receipt Date: 20160808
  Transmission Date: 20161109
  Serious: Yes (Other)
  Sender: FDA-Public Use
  Company Number: CA-ROCHE-1440528

PATIENT
  Age: 59 Year
  Sex: Female

DRUGS (9)
  1. PMS-MINOCYCLINE [Suspect]
     Active Substance: MINOCYCLINE HYDROCHLORIDE
     Indication: VISION BLURRED
     Route: 065
  2. DIPHENHYDRAMINE HCL [Concomitant]
     Active Substance: DIPHENHYDRAMINE HYDROCHLORIDE
     Route: 048
     Dates: start: 20140723
  3. METHOTREXATE. [Concomitant]
     Active Substance: METHOTREXATE
  4. ASPIRIN. [Concomitant]
     Active Substance: ASPIRIN
     Dosage: 10 PRN
     Route: 065
  5. METHYLPREDNISOLONE. [Concomitant]
     Active Substance: METHYLPREDNISOLONE
     Route: 042
     Dates: start: 20140723
  6. RITUXAN [Suspect]
     Active Substance: RITUXIMAB
     Indication: RHEUMATOID ARTHRITIS
     Dosage: LAST RITUXAN INFUSION: 25/FEB/2016
     Route: 042
     Dates: start: 20140723
  7. FOLIC ACID. [Concomitant]
     Active Substance: FOLIC ACID
  8. ACETAMINOPHEN. [Concomitant]
     Active Substance: ACETAMINOPHEN
     Route: 048
     Dates: start: 20140723
  9. PLAQUENIL [Concomitant]
     Active Substance: HYDROXYCHLOROQUINE SULFATE

REACTIONS (8)
  - Vision blurred [Not Recovered/Not Resolved]
  - Infusion related reaction [Recovered/Resolved]
  - Rheumatoid arthritis [Unknown]
  - Bronchitis [Recovered/Resolved]
  - Ocular hyperaemia [Unknown]
  - Visual acuity reduced [Not Recovered/Not Resolved]
  - Sleep apnoea syndrome [Not Recovered/Not Resolved]
  - Eye disorder [Not Recovered/Not Resolved]

NARRATIVE: CASE EVENT DATE: 20140723
